FAERS Safety Report 6906041-4 (Version None)
Quarter: 2010Q3

REPORT INFORMATION
  Report Type: 
  Country: None (occurrence: None)
  Receive Date: 20100802
  Receipt Date: 20100722
  Transmission Date: 20110219
  Serious: Yes (Hospitalization)
  Sender: FDA-Public Use
  Company Number: LEO-2010-00632

PATIENT
  Age: 64 Year
  Sex: Male

DRUGS (2)
  1. INNOHEP [Suspect]
     Indication: PHLEBITIS
     Dosage: 14000 IU (14000 IU, 1 IN 1 D, SUBCUTANEOUS
     Route: 058
     Dates: start: 20100401, end: 20100427
  2. LERCANIDIPINE [Concomitant]

REACTIONS (4)
  - DYSPNOEA [None]
  - EPISTAXIS [None]
  - HAEMOGLOBIN DECREASED [None]
  - POST PROCEDURAL HAEMORRHAGE [None]
